FAERS Safety Report 5766316-1 (Version None)
Quarter: 2008Q2

REPORT INFORMATION
  Report Type: 
  Country: None (occurrence: None)
  Receive Date: 20080605
  Receipt Date: 20080522
  Transmission Date: 20081010
  Serious: Yes (Hospitalization, Other)
  Sender: FDA-Public Use
  Company Number: 2008US000979

PATIENT
  Age: 45 Year
  Sex: Male

DRUGS (5)
  1. AMBISOME [Suspect]
     Indication: BRONCHOPULMONARY ASPERGILLOSIS
     Dosage: 200 MG, UID/QD, IV NOS
     Route: 042
     Dates: start: 20080212, end: 20080311
  2. RIFAMPICIN [Suspect]
  3. ITRAZOL   (ITRACONAZOLE) [Concomitant]
  4. CODEINE SUL TAB [Concomitant]
  5. MUCODYNE (CARBOCISTEINE) [Concomitant]

REACTIONS (5)
  - HYPOCALCAEMIA [None]
  - HYPOKALAEMIA [None]
  - LIVER DISORDER [None]
  - RHABDOMYOLYSIS [None]
  - TUBERCULOSIS [None]
